FAERS Safety Report 19634586 (Version 4)
Quarter: 2021Q4

REPORT INFORMATION
  Report Type: Spontaneous
  Country: JP (occurrence: JP)
  Receive Date: 20210729
  Receipt Date: 20211230
  Transmission Date: 20220303
  Serious: Yes (Other)
  Sender: FDA-Public Use
  Company Number: JP-JNJFOC-20210745736

PATIENT
  Age: 91 Year
  Sex: Female

DRUGS (5)
  1. UPTRAVI [Suspect]
     Active Substance: SELEXIPAG
     Indication: Pulmonary hypertension
     Dosage: 0.2 MG
     Route: 048
     Dates: start: 20201226
  2. UPTRAVI [Suspect]
     Active Substance: SELEXIPAG
     Route: 048
  3. SAMSCA [Concomitant]
     Active Substance: TOLVAPTAN
  4. LASIX [Concomitant]
     Active Substance: FUROSEMIDE
  5. AZOSEMIDE [Concomitant]
     Active Substance: AZOSEMIDE

REACTIONS (2)
  - Arrhythmia [Recovered/Resolved]
  - Headache [Recovered/Resolved]
